FAERS Safety Report 12976086 (Version 2)
Quarter: 2017Q1

REPORT INFORMATION
  Report Type: Spontaneous
  Country: GB (occurrence: GB)
  Receive Date: 20161126
  Receipt Date: 20170113
  Transmission Date: 20170428
  Serious: Yes (Other)
  Sender: FDA-Public Use
  Company Number: GB-AMGEN-GBRSP2016045567

PATIENT
  Age: 43 Year
  Sex: Female

DRUGS (1)
  1. ENBREL [Suspect]
     Active Substance: ETANERCEPT
     Indication: PSORIATIC ARTHROPATHY
     Dosage: 25 MG, TWICE WEEKLY (ON A MONDAY)
     Route: 058
     Dates: start: 20151221

REACTIONS (13)
  - Lower respiratory tract infection [Unknown]
  - Malaise [Unknown]
  - Peripheral swelling [Recovering/Resolving]
  - Tooth disorder [Unknown]
  - Carpal tunnel syndrome [Unknown]
  - Weight decreased [Unknown]
  - Uterine leiomyoma [Unknown]
  - Drug ineffective [Unknown]
  - Back pain [Unknown]
  - Stress [Unknown]
  - Depressed mood [Unknown]
  - Injection site pruritus [Unknown]
  - Pain in extremity [Unknown]
